FAERS Safety Report 6326681-3 (Version None)
Quarter: 2009Q3

REPORT INFORMATION
  Report Type: 
  Country: None (occurrence: None)
  Receive Date: 20090825
  Receipt Date: 20090812
  Transmission Date: 20100115
  Serious: Yes (Death, Other)
  Sender: FDA-Public Use
  Company Number: CN-PFIZER INC-2009247481

PATIENT
  Age: 44 Year

DRUGS (2)
  1. SOLU-MEDROL [Suspect]
     Indication: DERMATOMYOSITIS
     Dosage: UNK
     Route: 042
     Dates: start: 20090601, end: 20090728
  2. METOPROLOL TARTRATE [Concomitant]
     Route: 048

REACTIONS (8)
  - CHILLS [None]
  - ELECTROCARDIOGRAM ST SEGMENT ABNORMAL [None]
  - HEART RATE INCREASED [None]
  - HYPERSENSITIVITY [None]
  - HYPERTONIA [None]
  - MENTAL DISORDER [None]
  - PYREXIA [None]
  - RESPIRATORY FAILURE [None]
